FAERS Safety Report 20321991 (Version 2)
Quarter: 2022Q1

REPORT INFORMATION
  Report Type: Spontaneous
  Country: RO (occurrence: RO)
  Receive Date: 20220111
  Receipt Date: 20220114
  Transmission Date: 20220424
  Serious: Yes (Hospitalization, Other)
  Sender: FDA-Public Use
  Company Number: RO-002147023-NVSC2021RO286978

PATIENT
  Age: 51 Year
  Sex: Female

DRUGS (6)
  1. IMATINIB [Suspect]
     Active Substance: IMATINIB
     Indication: Chronic myeloid leukaemia transformation
     Dosage: UNK, UNKNOWN
     Route: 065
  2. IMATINIB [Suspect]
     Active Substance: IMATINIB
     Indication: Chronic myeloid leukaemia
  3. DASATINIB [Suspect]
     Active Substance: DASATINIB
     Indication: Chronic myeloid leukaemia
     Dosage: UNK
     Route: 065
  4. DASATINIB [Concomitant]
     Active Substance: DASATINIB
     Indication: Chronic myeloid leukaemia
     Dosage: UNK
     Route: 065
  5. CYTARABINE [Concomitant]
     Active Substance: CYTARABINE
     Indication: Chronic myeloid leukaemia
     Dosage: UNK (3+7 REGIMEN)
     Route: 065
  6. IDARUBICIN [Concomitant]
     Active Substance: IDARUBICIN
     Indication: Chronic myeloid leukaemia
     Dosage: UNK (3+7 REGIMEN)
     Route: 065

REACTIONS (7)
  - Leukopenia [Unknown]
  - Arthralgia [Recovering/Resolving]
  - Anaemia [Unknown]
  - Neutropenia [Unknown]
  - Drug resistance [Unknown]
  - COVID-19 pneumonia [Recovered/Resolved]
  - Disease progression [Unknown]
